FAERS Safety Report 8835475 (Version 1)
Quarter: 2012Q4

REPORT INFORMATION
  Report Type: 
  Country: CN (occurrence: CN)
  Receive Date: 20121011
  Receipt Date: 20121011
  Transmission Date: 20130627
  Serious: Yes (Other)
  Sender: FDA-Public Use
  Company Number: PHHY2012CN087990

PATIENT
  Age: 1 Year
  Sex: Female

DRUGS (4)
  1. CICLOSPORIN [Suspect]
     Indication: PROPHYLAXIS AGAINST GRAFT VERSUS HOST DISEASE
     Dosage: 3-5 mg/kg, per day
  2. BUSULFAN [Suspect]
     Indication: PROPHYLAXIS AGAINST GRAFT VERSUS HOST DISEASE
     Dosage: 16 mg/kg, per day
  3. CYCLOPHOSPHAMIDE [Suspect]
     Indication: PROPHYLAXIS AGAINST GRAFT VERSUS HOST DISEASE
  4. ANTITHYMOCYTE IMMUNOGLOBULIN [Suspect]
     Indication: PROPHYLAXIS AGAINST GRAFT VERSUS HOST DISEASE

REACTIONS (10)
  - Thalassaemia [Unknown]
  - Acute graft versus host disease [Recovered/Resolved]
  - Diarrhoea [Unknown]
  - Erythema [Unknown]
  - Rash maculo-papular [Unknown]
  - Rash erythematous [Unknown]
  - Pyrexia [Unknown]
  - Mouth ulceration [Unknown]
  - Chills [Unknown]
  - Transplant rejection [Unknown]
